FAERS Safety Report 6035963-4 (Version None)
Quarter: 2009Q1

REPORT INFORMATION
  Report Type: 
  Country: None (occurrence: None)
  Receive Date: 20090113
  Receipt Date: 20090108
  Transmission Date: 20090719
  Serious: Yes (Hospitalization, Other)
  Sender: FDA-Public Use
  Company Number: GB-MERCK-0901GBR00018

PATIENT
  Age: 89 Year
  Sex: Female

DRUGS (4)
  1. ZETIA [Suspect]
     Indication: BLOOD CHOLESTEROL INCREASED
     Route: 048
     Dates: start: 20070501
  2. AMLODIPINE [Concomitant]
     Route: 065
     Dates: start: 20070501
  3. BISOPROLOL [Concomitant]
     Route: 065
     Dates: start: 20070601
  4. DOXAZOSIN MESYLATE [Concomitant]
     Route: 065
     Dates: start: 20040101

REACTIONS (2)
  - FALL [None]
  - HYPONATRAEMIA [None]
